FAERS Safety Report 18526736 (Version 1)
Quarter: 2020Q4

REPORT INFORMATION
  Report Type: Spontaneous
  Country: CN (occurrence: CN)
  Receive Date: 20201120
  Receipt Date: 20201120
  Transmission Date: 20210114
  Serious: Yes (Other)
  Sender: FDA-Public Use
  Company Number: CN-009507513-2011CHN009501

PATIENT
  Age: 64 Year
  Sex: Male
  Weight: 67 kg

DRUGS (1)
  1. INVANZ [Suspect]
     Active Substance: ERTAPENEM SODIUM
     Indication: SYMPTOMATIC TREATMENT
     Dosage: 0.5G, QD, IVGTT, POWDER FOR INJECTION
     Route: 041
     Dates: start: 20201026, end: 20201030

REACTIONS (5)
  - Disorganised speech [Recovering/Resolving]
  - Diabetes mellitus [Unknown]
  - Hypertension [Unknown]
  - Azotaemia [Unknown]
  - Somnolence [Recovering/Resolving]

NARRATIVE: CASE EVENT DATE: 2020
